FAERS Safety Report 4764912-1 (Version None)
Quarter: 2005Q3

REPORT INFORMATION
  Report Type: 
  Country: None (occurrence: None)
  Receive Date: 20050909
  Receipt Date: 20050902
  Transmission Date: 20060218
  Serious: Yes (Hospitalization, Other)
  Sender: FDA-Public Use
  Company Number: US-JNJFOC-20050703222

PATIENT
  Sex: Female
  Weight: 48.54 kg

DRUGS (24)
  1. DURAGESIC-100 [Suspect]
     Route: 062
  2. DURAGESIC-100 [Suspect]
     Route: 062
  3. DURAGESIC-100 [Suspect]
     Route: 062
  4. DURAGESIC-100 [Suspect]
     Route: 062
  5. DURAGESIC-100 [Suspect]
     Route: 062
  6. FLEXERIL [Concomitant]
  7. CARISOPRODOL [Concomitant]
  8. ACTIQ [Concomitant]
  9. LEVAQUIN [Concomitant]
  10. OXYCODONE AND ACETAMINOPHEN [Concomitant]
  11. OXYCODONE AND ACETAMINOPHEN [Concomitant]
  12. OXYCODONE AND ACETAMINOPHEN [Concomitant]
  13. PREDNISONE TAB [Concomitant]
  14. PREVACID [Concomitant]
  15. ESTRADERM [Concomitant]
  16. DIAZAPAM [Concomitant]
  17. KADIAN [Concomitant]
  18. PROMETHAZINE [Concomitant]
  19. CELEBREX [Concomitant]
  20. HYDROCODONE BITARTRATE + ACETAMINOPHEN [Concomitant]
  21. HYDROCODONE BITARTRATE + ACETAMINOPHEN [Concomitant]
  22. OXYCONTIN [Concomitant]
  23. AMOXICILLIN [Concomitant]
  24. POLYETHYLENE GLYCOL 3350 [Concomitant]

REACTIONS (15)
  - ABDOMINAL PAIN LOWER [None]
  - ANXIETY [None]
  - BACK PAIN [None]
  - BLADDER STENOSIS [None]
  - BONE PAIN [None]
  - CYSTITIS [None]
  - CYSTITIS INTERSTITIAL [None]
  - FIBROMYALGIA [None]
  - HEADACHE [None]
  - INSOMNIA [None]
  - INTESTINAL OBSTRUCTION [None]
  - PAIN [None]
  - PAIN IN EXTREMITY [None]
  - PANIC ATTACK [None]
  - SHOULDER PAIN [None]
